FAERS Safety Report 5135114-4 (Version None)
Quarter: 2006Q4

REPORT INFORMATION
  Report Type: 
  Country: None (occurrence: None)
  Receive Date: 20060831
  Receipt Date: 20060504
  Transmission Date: 20070319
  Serious: No
  Sender: FDA-Public Use
  Company Number: 2006-BP-05690PF

PATIENT
  Age: 64 Year
  Sex: Male
  Weight: 72.57 kg

DRUGS (7)
  1. SPIRIVA [Suspect]
     Indication: EMPHYSEMA
     Dosage: 18 MCG (18 MCG,1 IN 1 D),IH
     Route: 055
     Dates: start: 20050801, end: 20060501
  2. LIPITOR [Suspect]
     Indication: BLOOD CHOLESTEROL INCREASED
     Dosage: 10 MG (10 MG,QD),PO
     Route: 048
  3. FORADIL [Suspect]
     Indication: EMPHYSEMA
  4. SINGULAIR [Concomitant]
  5. ALLEGRA [Concomitant]
  6. ATIVAN [Concomitant]
  7. FLONASE [Concomitant]

REACTIONS (1)
  - MUSCLE TIGHTNESS [None]
